FAERS Safety Report 4653314-4 (Version None)
Quarter: 2005Q2

REPORT INFORMATION
  Report Type: 
  Country: None (occurrence: None)
  Receive Date: 20050505
  Receipt Date: 20050429
  Transmission Date: 20051028
  Serious: Yes (Other)
  Sender: FDA-Public Use
  Company Number: FR-BRISTOL-MYERS SQUIBB COMPANY-12951315

PATIENT
  Age: 52 Year
  Sex: Male

DRUGS (4)
  1. SUSTIVA [Suspect]
     Route: 048
     Dates: start: 20050414, end: 20050101
  2. TELZIR [Concomitant]
     Dosage: DISCONTINUED ON 21-MAR-2005 DUE TO HEPATIC DISORDERS AND RESTARTED ON 14-APR-2005.
     Dates: start: 20050217
  3. VIREAD [Concomitant]
     Dosage: DISCONTINUED ON 21-MAR-2005 DUE TO HEPATIC DISORDERS AND RESTARTED ON 14-APR-2005.
     Dates: start: 20050217
  4. NORVIR [Concomitant]
     Dosage: DISCONTINUED ON 21-MAR-2005 DUE TO HEPATIC DISORDERS AND RESTARTED ON 14-APR-2005.
     Dates: start: 20050217

REACTIONS (2)
  - DERMATITIS BULLOUS [None]
  - URTICARIA [None]
